FAERS Safety Report 8080667-X (Version None)
Quarter: 2012Q1

REPORT INFORMATION
  Report Type: 
  Country: None (occurrence: None)
  Receive Date: 20120130
  Receipt Date: 20120123
  Transmission Date: 20120608
  Serious: Yes (Other)
  Sender: FDA-Public Use
  Company Number: PHHY2012AR006250

PATIENT
  Sex: Female

DRUGS (1)
  1. ZOLEDRONOC ACID [Suspect]
     Indication: OSTEOPOROSIS
     Dosage: UNK
     Route: 042
     Dates: start: 20100101

REACTIONS (5)
  - RENAL DISORDER [None]
  - BLOOD CREATINE INCREASED [None]
  - MICTURITION URGENCY [None]
  - URINARY INCONTINENCE [None]
  - MALAISE [None]
